FAERS Safety Report 5693137-0 (Version None)
Quarter: 2008Q2

REPORT INFORMATION
  Report Type: 
  Country: None (occurrence: None)
  Receive Date: 20080402
  Receipt Date: 20080402
  Transmission Date: 20081010
  Serious: Yes (Other)
  Sender: FDA-Public Use
  Company Number: None

PATIENT
  Age: 66 Year
  Sex: Female
  Weight: 96.1626 kg

DRUGS (1)
  1. ZICAM ZINC NASAL SPRAY SEE BOTTLE MATRIXX [Suspect]
     Indication: NASOPHARYNGITIS
     Dosage: 1 SPRAY TWICE DAILY NASAL
     Route: 045
     Dates: start: 20080201, end: 20080329

REACTIONS (1)
  - ANOSMIA [None]
